FAERS Safety Report 9361297 (Version 1)
Quarter: 2013Q2

REPORT INFORMATION
  Report Type: Spontaneous
  Country: US (occurrence: US)
  Receive Date: 20130621
  Receipt Date: 20130621
  Transmission Date: 20140414
  Serious: Yes (Other)
  Sender: FDA-Public Use
  Company Number: US-ABBOTT-13P-163-1103245-00

PATIENT
  Age: 71 Year
  Sex: Female
  Weight: 67.19 kg

DRUGS (3)
  1. HUMIRA [Suspect]
     Indication: PSORIASIS
     Route: 058
     Dates: start: 201202, end: 201202
  2. HUMIRA [Suspect]
     Route: 058
     Dates: start: 201202, end: 20130501
  3. PREVACID [Concomitant]
     Indication: GASTROOESOPHAGEAL REFLUX DISEASE

REACTIONS (3)
  - Genital disorder female [Not Recovered/Not Resolved]
  - Infusion site infection [Recovering/Resolving]
  - Infection [Recovering/Resolving]
